FAERS Safety Report 10565651 (Version 1)
Quarter: 2014Q4

REPORT INFORMATION
  Report Type: Spontaneous
  Country: US (occurrence: None)
  Receive Date: 20141103
  Receipt Date: 20141103
  Transmission Date: 20150529
  Serious: Yes (Death)
  Sender: FDA-Public Use
  Company Number: FK201404673

PATIENT
  Age: 32 Year
  Sex: Male
  Weight: 168 kg

DRUGS (1)
  1. PROPOFOL. [Suspect]
     Active Substance: PROPOFOL
     Indication: SEDATION
     Dosage: MIN

REACTIONS (14)
  - Acute kidney injury [None]
  - Cardiac arrest [None]
  - Cardiomegaly [None]
  - Propofol infusion syndrome [None]
  - Pneumonia [None]
  - Oedema [None]
  - Rhabdomyolysis [None]
  - Blood potassium increased [None]
  - Metabolic acidosis [None]
  - Blood creatine phosphokinase increased [None]
  - Pulmonary congestion [None]
  - Transaminases increased [None]
  - Acute respiratory distress syndrome [None]
  - Blood triglycerides increased [None]
